FAERS Safety Report 4686678-6 (Version None)
Quarter: 2005Q2

REPORT INFORMATION
  Report Type: 
  Country: None (occurrence: None)
  Receive Date: 20050606
  Receipt Date: 20050524
  Transmission Date: 20051028
  Serious: Yes (Death)
  Sender: FDA-Public Use
  Company Number: EWC050544200

PATIENT
  Sex: Female

DRUGS (11)
  1. FORTEO [Suspect]
     Indication: OSTEOPOROSIS
     Dosage: 20 MG
     Dates: start: 20040723
  2. FOSAMAX [Concomitant]
  3. NITROGEN (GLYCERYL TRINITRATE` [Concomitant]
  4. ACETAMINOPHEN [Concomitant]
  5. ORASORBIL - SLOW REKEASE (ISOSORBIDE MONONITRATE) [Concomitant]
  6. PREDNISOLONE [Concomitant]
  7. PEPCIDN (FAMOTIDINE) [Concomitant]
  8. PLENDIL [Concomitant]
  9. DEXOFEN (DEXTROPROPOXYPHENE NAPSILATE) [Concomitant]
  10. STILENOCT (ZOLPIDEM TARTRATE) [Concomitant]
  11. IDEOS [Concomitant]

REACTIONS (5)
  - ANXIETY [None]
  - ARTERIOSCLEROSIS [None]
  - DYSPNOEA [None]
  - MYALGIA [None]
  - PULMONARY OEDEMA [None]
